FAERS Safety Report 14693762 (Version 6)
Quarter: 2020Q1

REPORT INFORMATION
  Report Type: Report from Study
  Country: AR (occurrence: AR)
  Receive Date: 20180329
  Receipt Date: 20200124
  Transmission Date: 20200409
  Serious: Yes (Hospitalization, Other)
  Sender: FDA-Public Use
  Company Number: PHHY2018AR036043

PATIENT
  Age: 5 Year
  Sex: Female

DRUGS (7)
  1. OMNITROPE [Suspect]
     Active Substance: SOMATROPIN
     Indication: GROWTH HORMONE DEFICIENCY
     Dosage: 10 MG, UNKNOWN
     Route: 065
     Dates: start: 20151101
  2. OMNITROPE [Suspect]
     Active Substance: SOMATROPIN
     Indication: HYPOPITUITARISM
     Dosage: 0.8MG/DAY FOR 6 DAYS (1 DAY REST)
     Route: 065
     Dates: start: 201704
  3. OMNITROPE [Suspect]
     Active Substance: SOMATROPIN
     Dosage: 10 MG, UNKNOWN
     Route: 065
     Dates: start: 201902
  4. HYDROCORTISONE. [Concomitant]
     Active Substance: HYDROCORTISONE
     Indication: PRODUCT USED FOR UNKNOWN INDICATION
     Route: 065
  5. LEVOTHYROXINE. [Concomitant]
     Active Substance: LEVOTHYROXINE
     Indication: PRODUCT USED FOR UNKNOWN INDICATION
     Route: 065
  6. OMNITROPE [Suspect]
     Active Substance: SOMATROPIN
     Dosage: UNK
     Route: 065
     Dates: start: 20180613
  7. DESMOPRESSIN [Concomitant]
     Active Substance: DESMOPRESSIN
     Indication: PRODUCT USED FOR UNKNOWN INDICATION
     Route: 065

REACTIONS (8)
  - Disease recurrence [Not Recovered/Not Resolved]
  - Injection site haemorrhage [Unknown]
  - Injection site haematoma [Recovered/Resolved]
  - Diabetes insipidus [Unknown]
  - Injection site pain [Unknown]
  - Device malfunction [Not Recovered/Not Resolved]
  - Injection site bruising [Unknown]
  - Craniopharyngioma [Unknown]

NARRATIVE: CASE EVENT DATE: 20151220
